FAERS Safety Report 10690568 (Version 1)
Quarter: 2015Q1

REPORT INFORMATION
  Report Type: Spontaneous
  Country: CA (occurrence: None)
  Receive Date: 20150102
  Receipt Date: 20150102
  Transmission Date: 20150720
  Serious: Yes (Other)
  Sender: FDA-Public Use
  Company Number: 2014-CA-017253

PATIENT
  Age: 55 Year
  Sex: Male

DRUGS (3)
  1. MODAFINIL. [Concomitant]
     Active Substance: MODAFINIL
  2. XYREM [Suspect]
     Active Substance: SODIUM OXYBATE
     Indication: CATAPLEXY
     Route: 048
     Dates: start: 20140507, end: 201405
  3. JAMP ASA (ACETYLSALIC ACID) [Concomitant]

REACTIONS (7)
  - Hyperhidrosis [None]
  - Myocardial infarction [None]
  - Intentional underdose [None]
  - Blood pressure increased [None]
  - Pulmonary mass [None]
  - Sleep apnoea syndrome [None]
  - Asthenia [None]

NARRATIVE: CASE EVENT DATE: 2014
